FAERS Safety Report 10061382 (Version 1)
Quarter: 2014Q2

REPORT INFORMATION
  Report Type: Spontaneous
  Country: CA (occurrence: CA)
  Receive Date: 20140407
  Receipt Date: 20140407
  Transmission Date: 20141212
  Serious: Yes (Life-Threatening, Hospitalization)
  Sender: FDA-Public Use
  Company Number: CA-JNJFOC-20140317549

PATIENT
  Age: 58 Year
  Sex: Female
  Weight: 53.3 kg

DRUGS (17)
  1. CAELYX [Suspect]
     Indication: OVARIAN CANCER
     Route: 042
     Dates: start: 20140224
  2. EC145 [Suspect]
     Indication: OVARIAN CANCER
     Dosage: DAY 1, 3, 5, 15, 1 AND 19)
     Route: 042
     Dates: start: 20140224, end: 20140228
  3. EC20 [Suspect]
     Indication: SINGLE PHOTON EMISSION COMPUTERISED TOMOGRAM
     Dosage: 4 DAYS
     Route: 042
     Dates: start: 20140214, end: 20140214
  4. FOLIC ACID [Suspect]
     Indication: SINGLE PHOTON EMISSION COMPUTERISED TOMOGRAM
     Dosage: 4 DAYS
     Route: 042
     Dates: start: 20140214, end: 20140214
  5. TYLENOL ARTHRITIS [Concomitant]
     Indication: PAIN
     Dosage: AT BEDTIME
     Route: 048
     Dates: start: 2013
  6. TYLENOL EXTRA STRENGTH [Concomitant]
     Indication: ABDOMINAL PAIN
     Route: 048
     Dates: start: 2013
  7. PROFERRIN [Concomitant]
     Indication: ANAEMIA
     Route: 048
     Dates: start: 2013
  8. VITAMIN D [Concomitant]
     Indication: VITAMIN SUPPLEMENTATION
     Route: 048
     Dates: start: 2013
  9. MAXERAN [Concomitant]
     Indication: NAUSEA
     Dosage: 10 MG,AS REQUIRED
     Route: 048
     Dates: start: 20140310
  10. DEXAMETHASONE [Concomitant]
     Indication: PROPHYLAXIS
     Dosage: DAY 1 OF CHEMOTHERAPY
     Route: 048
     Dates: start: 20140224
  11. ONDANSETRON [Concomitant]
     Indication: PROPHYLAXIS
     Dosage: DAY 1 OF CHEMOTHERAPY
     Route: 048
     Dates: start: 20140224
  12. CALCIUM [Concomitant]
     Indication: SUPPLEMENTATION THERAPY
     Route: 048
     Dates: start: 20140222
  13. MAGNESIUM [Concomitant]
     Indication: SUPPLEMENTATION THERAPY
     Route: 048
     Dates: start: 20140222
  14. STEMETIL [Concomitant]
     Indication: PROPHYLAXIS
     Dosage: 10 MG,AS REQUIRED
     Route: 048
     Dates: start: 20140301
  15. CIPROFLOXACIN [Concomitant]
     Indication: PROPHYLAXIS
     Route: 065
  16. NEXIUM [Concomitant]
     Indication: GASTROOESOPHAGEAL REFLUX DISEASE
     Route: 048
     Dates: start: 1990
  17. PREMARIN [Concomitant]
     Indication: HOT FLUSH
     Route: 048
     Dates: start: 2005

REACTIONS (3)
  - Pancytopenia [Recovered/Resolved]
  - Febrile neutropenia [Recovered/Resolved]
  - Allergic transfusion reaction [Recovered/Resolved]
